FAERS Safety Report 7682656 (Version 2)
Quarter: 2014Q1

REPORT INFORMATION
  Report Type: Spontaneous
  Country: US (occurrence: US)
  Receive Date: 20101124
  Receipt Date: 20140331
  Transmission Date: 20141002
  Serious: Yes (Hospitalization)
  Sender: FDA-Public Use
  Company Number: US-ALEXION-A201001398

PATIENT
  Age: 26 Year
  Sex: Female

DRUGS (10)
  1. SOLIRIS 300MG [Suspect]
     Indication: PAROXYSMAL NOCTURNAL HAEMOGLOBINURIA
     Dosage: UNK, Q2W
     Route: 042
     Dates: start: 200810
  2. SOLIRIS 300MG [Suspect]
     Dosage: 900 MG, Q4WK
     Route: 042
  3. SOLIRIS 300MG [Suspect]
     Dosage: 900 MG, Q2W
     Route: 042
  4. FOLIC ACID [Concomitant]
     Dosage: 1 MG, BID
  5. VICODIN [Concomitant]
     Dosage: UNK
  6. PROZAC                             /00724401/ [Concomitant]
     Dosage: UNK
  7. COUMADIN                           /00014802/ [Concomitant]
     Dosage: 3 MG, QD
     Route: 042
  8. LASIX                              /00032601/ [Concomitant]
     Dosage: UNK
  9. SPIRONOLACTONE [Concomitant]
     Dosage: UNK
  10. FERROUS SULFATE [Concomitant]
     Dosage: 325 MG, QD

REACTIONS (6)
  - Haemoglobin decreased [Recovered/Resolved]
  - Jaundice [Recovered/Resolved]
  - Back pain [Recovered/Resolved]
  - Abdominal pain [Recovered/Resolved]
  - Treatment noncompliance [Recovered/Resolved]
  - Pallor [Unknown]
